FAERS Safety Report 6084478-6 (Version None)
Quarter: 2009Q1

REPORT INFORMATION
  Report Type: 
  Country: None (occurrence: None)
  Receive Date: 20090219
  Receipt Date: 20090204
  Transmission Date: 20090719
  Serious: Yes (Other)
  Sender: FDA-Public Use
  Company Number: JP-PFIZER INC-2009164717

PATIENT

DRUGS (5)
  1. CHAMPIX [Suspect]
     Indication: SMOKING CESSATION THERAPY
     Dosage: 0.5 MG, 1X/DAY
     Route: 048
     Dates: start: 20090109, end: 20090111
  2. UBRETID [Concomitant]
     Indication: DYSURIA
     Dosage: 5 MG, 1X/DAY
     Route: 048
     Dates: start: 20080526
  3. UBRETID [Concomitant]
     Indication: NEUROGENIC BLADDER
  4. EBRANTIL [Concomitant]
     Indication: DYSURIA
     Dosage: 15 MG, 1X/DAY
     Route: 048
     Dates: start: 20080526
  5. EBRANTIL [Concomitant]
     Indication: NEUROGENIC BLADDER

REACTIONS (1)
  - ANURIA [None]
